FAERS Safety Report 7367915-6 (Version None)
Quarter: 2011Q1

REPORT INFORMATION
  Report Type: 
  Country: None (occurrence: None)
  Receive Date: 20110322
  Receipt Date: 20110311
  Transmission Date: 20110831
  Serious: Yes (Death)
  Sender: FDA-Public Use
  Company Number: JP-AMGEN-JPNCT2011006188

PATIENT
  Age: 69 Year
  Sex: Male
  Weight: 46 kg

DRUGS (9)
  1. LYRICA [Suspect]
     Dosage: UNK
     Route: 048
     Dates: start: 20110115
  2. CELECOX [Concomitant]
     Dosage: UNK
     Route: 048
     Dates: start: 20101119
  3. MAGLAX [Concomitant]
     Dosage: UNK
     Route: 048
  4. OXYCONTIN [Suspect]
     Dosage: UNK
     Route: 048
     Dates: start: 20110118
  5. TRAMAL [Concomitant]
     Dosage: UNK
     Route: 065
     Dates: start: 20101217
  6. PANITUMUMAB [Suspect]
     Indication: COLORECTAL CANCER
     Dosage: 6 MG/KG, Q2WK
     Route: 041
     Dates: start: 20100812, end: 20101022
  7. PANITUMUMAB [Suspect]
     Dosage: 6 MG/KG, Q2WK
     Route: 041
     Dates: start: 20101119, end: 20101217
  8. HERBAL PREPARATION [Concomitant]
     Dosage: UNK
     Route: 048
  9. OXINORM [Suspect]
     Dosage: UNK
     Route: 048
     Dates: start: 20110118

REACTIONS (7)
  - RASH [None]
  - SPINAL COMPRESSION FRACTURE [None]
  - SKIN FISSURES [None]
  - INTERSTITIAL LUNG DISEASE [None]
  - PNEUMONIA ASPIRATION [None]
  - PRURITUS [None]
  - DERMATITIS ACNEIFORM [None]
